FAERS Safety Report 23963538 (Version 1)
Quarter: 2024Q2

REPORT INFORMATION
  Report Type: Spontaneous
  Country: US (occurrence: None)
  Receive Date: 20240610
  Receipt Date: 20240610
  Transmission Date: 20240715
  Serious: Yes (Other)
  Sender: FDA-Public Use
  Company Number: None

PATIENT
  Age: 66 Year
  Sex: Female
  Weight: 93.06 kg

DRUGS (18)
  1. MOUNJARO [Suspect]
     Active Substance: TIRZEPATIDE
     Indication: Type 2 diabetes mellitus
  2. MOUNJARO [Suspect]
     Active Substance: TIRZEPATIDE
     Indication: Incision site pain
  3. MOUNJARO [Suspect]
     Active Substance: TIRZEPATIDE
  4. HUMULIN R U-500 [Concomitant]
     Active Substance: INSULIN HUMAN
  5. OXYCODONE [Concomitant]
     Active Substance: OXYCODONE\OXYCODONE HYDROCHLORIDE
  6. TIZANIDINE [Concomitant]
     Active Substance: TIZANIDINE
  7. DEXCOM [Concomitant]
  8. BLOOD GLUCOSE METER [Concomitant]
  9. MEDICAL SCALE [Concomitant]
  10. MEDICAL BP CUFF [Concomitant]
  11. DEVICE [Concomitant]
     Active Substance: DEVICE
  12. HIP PROSTHESIS [Concomitant]
  13. GASX [Concomitant]
  14. ASPIRIN [Concomitant]
     Active Substance: ASPIRIN
  15. VITAMIN B COMPLEX [Concomitant]
     Active Substance: CYANOCOBALAMIN\DEXPANTHENOL\NIACINAMIDE\PYRIDOXINE HYDROCHLORIDE\RIBOFLAVIN 5^-PHOSPHATE SODIUM\THIA
  16. VITAMIN B [Concomitant]
  17. ONE A DAY OLD FOLKS VITAMIN [Concomitant]
  18. CIRTIRIZINE [Concomitant]

REACTIONS (3)
  - Therapy interrupted [None]
  - Blood glucose decreased [None]
  - Drug interaction [None]

NARRATIVE: CASE EVENT DATE: 20240609
